FAERS Safety Report 13796969 (Version 2)
Quarter: 2018Q4

REPORT INFORMATION
  Report Type: Spontaneous
  Country: IN (occurrence: IN)
  Receive Date: 20170726
  Receipt Date: 20181022
  Transmission Date: 20190204
  Serious: Yes (Hospitalization)
  Sender: FDA-Public Use
  Company Number: IN-CIPLA LTD.-2017IN13056

PATIENT

DRUGS (4)
  1. ETHAMBUTOL [Concomitant]
     Active Substance: ETHAMBUTOL HYDROCHLORIDE
     Indication: PULMONARY TUBERCULOSIS
     Dosage: 800 MG, UNK
     Route: 065
  2. ISONIAZID. [Concomitant]
     Active Substance: ISONIAZID
     Indication: PULMONARY TUBERCULOSIS
     Dosage: 300 MG
     Route: 065
  3. LEVOFLOXACIN. [Suspect]
     Active Substance: LEVOFLOXACIN
     Indication: PULMONARY TUBERCULOSIS
     Dosage: 500 MG, DAILY
     Route: 065
  4. RIFAMPICIN [Concomitant]
     Active Substance: RIFAMPIN
     Indication: PULMONARY TUBERCULOSIS
     Dosage: 450 MG, UNK

REACTIONS (2)
  - Myoclonus [Recovered/Resolved]
  - Chorea [Recovered/Resolved]
